FAERS Safety Report 8904646 (Version 1)
Quarter: 2012Q4

REPORT INFORMATION
  Report Type: 
  Country: FR (occurrence: FR)
  Receive Date: 20121113
  Receipt Date: 20121113
  Transmission Date: 20130627
  Serious: Yes (Other)
  Sender: FDA-Public Use
  Company Number: FR-JNJFOC-20121100091

PATIENT

DRUGS (14)
  1. FLUNARIZINE [Suspect]
     Indication: VERTIGO
     Route: 065
  2. HALOPERIDOL [Suspect]
     Indication: PRODUCT USED FOR UNKNOWN INDICATION
     Route: 065
  3. RISPERIDONE [Suspect]
     Indication: PRODUCT USED FOR UNKNOWN INDICATION
     Route: 048
  4. CYAMEMAZINE [Suspect]
     Indication: PRODUCT USED FOR UNKNOWN INDICATION
     Route: 065
  5. THIORIDAZINE [Suspect]
     Indication: PRODUCT USED FOR UNKNOWN INDICATION
     Route: 065
  6. THIOPROPERAZINE [Suspect]
     Indication: PRODUCT USED FOR UNKNOWN INDICATION
     Route: 065
  7. SULPIRIDE [Suspect]
     Indication: INSOMNIA
     Route: 065
  8. SULPIRIDE [Suspect]
     Indication: ANXIETY
     Route: 065
  9. METOCLOPRAMIDE [Suspect]
     Indication: GASTROINTESTINAL DISORDER
     Route: 065
  10. CINNARIZINE [Suspect]
     Indication: PRODUCT USED FOR UNKNOWN INDICATION
     Route: 065
  11. ACEPROMETAZINE [Suspect]
     Indication: INSOMNIA
     Route: 065
  12. LEVOMEPROMAZINE [Suspect]
     Indication: PRODUCT USED FOR UNKNOWN INDICATION
     Route: 065
  13. TIAPRIDE [Suspect]
     Indication: ANXIETY
     Route: 065
  14. TIAPRIDE [Suspect]
     Indication: INSOMNIA
     Route: 065

REACTIONS (1)
  - Parkinsonism [Unknown]
